FAERS Safety Report 24009414 (Version 1)
Quarter: 2024Q2

REPORT INFORMATION
  Report Type: Spontaneous
  Country: US (occurrence: US)
  Receive Date: 20240625
  Receipt Date: 20240625
  Transmission Date: 20240716
  Serious: Yes (Hospitalization)
  Sender: FDA-Public Use
  Company Number: US-INCYTE CORPORATION-2024IN006563

PATIENT

DRUGS (1)
  1. JAKAFI [Suspect]
     Active Substance: RUXOLITINIB
     Indication: Graft versus host disease
     Dosage: 5 MILLIGRAM, IN THE MORNING AND AT BEDTIME
     Route: 048
     Dates: start: 20230722

REACTIONS (3)
  - Hypotension [Unknown]
  - Urinary tract infection [Unknown]
  - Dyspnoea [Unknown]
